FAERS Safety Report 6392954-1 (Version None)
Quarter: 2009Q4

REPORT INFORMATION
  Report Type: 
  Country: None (occurrence: None)
  Receive Date: 20091008
  Receipt Date: 20080408
  Transmission Date: 20100525
  Serious: Yes (Other)
  Sender: FDA-Public Use
  Company Number: US-ASTRAZENECA-2007UW27059

PATIENT
  Age: 41 Year
  Sex: Male
  Weight: 125 kg

DRUGS (19)
  1. SEROQUEL [Suspect]
     Indication: DEPRESSION
     Dosage: VARIOUS DOSES INCLUDING BUT NOT LIMITED TO 100 MG, 200 MG, 300 MG, 600 MG
     Route: 048
     Dates: start: 19920101, end: 20070301
  2. SEROQUEL [Suspect]
     Dosage: 250 - 700 MG DAILY
     Route: 048
     Dates: start: 20020101, end: 20070426
  3. HALDOL [Concomitant]
     Dates: start: 20040101
  4. LEXAPRO [Concomitant]
     Dates: start: 20040101
  5. DEPAKOTE ER [Concomitant]
     Dates: start: 20030101
  6. DEPAKOTE ER [Concomitant]
     Dates: start: 20021223
  7. WELLBUTRIN SR [Concomitant]
     Dates: start: 20020101
  8. TOPROL-XL [Concomitant]
     Indication: HYPERTENSION
     Dates: start: 20021223
  9. TOPROL-XL [Concomitant]
     Indication: CORONARY ARTERY DISEASE
     Dates: start: 20021223
  10. TOPROL-XL [Concomitant]
     Indication: HEPATIC CIRRHOSIS
     Dates: start: 20021223
  11. XANAX [Concomitant]
     Dosage: 1 - 3 MG AS REQUIRED
     Route: 048
     Dates: start: 20021223
  12. EFFEXOR [Concomitant]
     Dates: start: 20040217
  13. GLUCOTROL [Concomitant]
     Indication: TYPE 2 DIABETES MELLITUS
     Dates: start: 20031208
  14. ACTOS [Concomitant]
     Indication: TYPE 2 DIABETES MELLITUS
     Dates: start: 20031208
  15. AMBIEN [Concomitant]
     Indication: INSOMNIA
     Dosage: 10 - 12.5 MG AT NIGHT
     Dates: start: 20060317
  16. KEPPRA [Concomitant]
     Indication: CONVULSION
     Dosage: 1500 - 3000 MG DAILY
     Dates: start: 20060317
  17. LIPITOR [Concomitant]
     Dates: start: 20060317
  18. NEURONTIN [Concomitant]
     Indication: DIABETIC NEUROPATHY
     Dosage: 600 - 1800 MG AT NIGHT
     Dates: start: 20060317
  19. MORPHINE SULFATE [Concomitant]
     Indication: PAIN
     Dosage: 45 - 75 MG DAILY
     Dates: start: 20060317

REACTIONS (18)
  - BLOOD GLUCOSE INCREASED [None]
  - CHOLECYSTITIS CHRONIC [None]
  - COMA HEPATIC [None]
  - CONVULSION [None]
  - DIABETES MELLITUS [None]
  - DIABETES MELLITUS INADEQUATE CONTROL [None]
  - DIABETIC NEUROPATHY [None]
  - GRAND MAL CONVULSION [None]
  - HEPATIC CIRRHOSIS [None]
  - HEPATIC ENCEPHALOPATHY [None]
  - HEPATITIS [None]
  - HEPATITIS C [None]
  - INJURY [None]
  - LIVER DISORDER [None]
  - LIVER FUNCTION TEST ABNORMAL [None]
  - TYPE 1 DIABETES MELLITUS [None]
  - TYPE 2 DIABETES MELLITUS [None]
  - WEIGHT INCREASED [None]
